FAERS Safety Report 22599815 (Version 1)
Quarter: 2023Q2

REPORT INFORMATION
  Report Type: Spontaneous
  Country: US (occurrence: US)
  Receive Date: 20230614
  Receipt Date: 20230614
  Transmission Date: 20230721
  Serious: Yes (Other)
  Sender: FDA-Public Use
  Company Number: US-ACS-20230153

PATIENT
  Sex: Female

DRUGS (2)
  1. MEROPENEM [Suspect]
     Active Substance: MEROPENEM
     Route: 040
  2. DAPTOMYCIN [Suspect]
     Active Substance: DAPTOMYCIN
     Dosage: EVERY OTHER DAY VIA INTRAJUGUALR (IJ) CENTRAL LINE
     Route: 040

REACTIONS (1)
  - Diarrhoea [Unknown]
